FAERS Safety Report 6460513-8 (Version None)
Quarter: 2009Q4

REPORT INFORMATION
  Report Type: 
  Country: None (occurrence: None)
  Receive Date: 20091130
  Receipt Date: 20091117
  Transmission Date: 20100525
  Serious: Yes (Other)
  Sender: FDA-Public Use
  Company Number: TR-JNJFOC-20091104714

PATIENT
  Sex: Female

DRUGS (3)
  1. TOPAMAX [Suspect]
     Route: 048
  2. TOPAMAX [Suspect]
     Indication: TEMPORAL LOBE EPILEPSY
     Route: 048
  3. TEGRETOL [Concomitant]
     Indication: EPILEPSY
     Route: 065

REACTIONS (1)
  - SKIN HYPERPIGMENTATION [None]
